FAERS Safety Report 7904304-7 (Version None)
Quarter: 2011Q4

REPORT INFORMATION
  Report Type: 
  Country: None (occurrence: None)
  Receive Date: 20111109
  Receipt Date: 20111108
  Transmission Date: 20120403
  Serious: Yes (Death, Hospitalization, Other)
  Sender: FDA-Public Use
  Company Number: US-EISAI INC-E2090-01834-SPO-US

PATIENT
  Age: 31 Year
  Sex: Female

DRUGS (2)
  1. ZONISAMIDE [Suspect]
     Indication: MIGRAINE
     Dosage: UNKNOWN
     Route: 048
  2. COTRIM [Suspect]
     Indication: RESPIRATORY TRACT INFECTION
     Dosage: UNKNOWN

REACTIONS (2)
  - DRUG RASH WITH EOSINOPHILIA AND SYSTEMIC SYMPTOMS [None]
  - MYOCARDITIS INFECTIOUS [None]
